FAERS Safety Report 12765708 (Version 1)
Quarter: 2016Q3

REPORT INFORMATION
  Report Type: Spontaneous
  Country: US (occurrence: US)
  Receive Date: 20160920
  Receipt Date: 20160920
  Transmission Date: 20161109
  Serious: No
  Sender: FDA-Public Use
  Company Number: None

PATIENT

DRUGS (7)
  1. CALCIUM [Concomitant]
     Active Substance: CALCIUM
  2. THYROID RX [Concomitant]
  3. REQUIP GENETRIC MADE BY ROXANE LABORATIES [Suspect]
     Active Substance: ROPINIROLE HYDROCHLORIDE
     Indication: PAIN IN EXTREMITY
     Route: 048
     Dates: start: 201608, end: 201608
  4. REQUIP GENETRIC MADE BY ROXANE LABORATIES [Suspect]
     Active Substance: ROPINIROLE HYDROCHLORIDE
     Indication: SLEEP DISORDER THERAPY
     Route: 048
     Dates: start: 201608, end: 201608
  5. SIMVASTATIN. [Concomitant]
     Active Substance: SIMVASTATIN
  6. ZOLOFT [Concomitant]
     Active Substance: SERTRALINE HYDROCHLORIDE
  7. BLOOD PRESSURE RX [Concomitant]

REACTIONS (3)
  - Insomnia [None]
  - Tension [None]
  - Product substitution issue [None]

NARRATIVE: CASE EVENT DATE: 201608
